FAERS Safety Report 19227772 (Version 5)
Quarter: 2021Q3

REPORT INFORMATION
  Report Type: Report from Study
  Country: DE (occurrence: DE)
  Receive Date: 20210507
  Receipt Date: 20210910
  Transmission Date: 20211014
  Serious: Yes (Hospitalization, Other)
  Sender: FDA-Public Use
  Company Number: DE-AMGEN-DEUNI2021067888

PATIENT
  Age: 65 Year
  Sex: Male

DRUGS (10)
  1. ERENUMAB [Suspect]
     Active Substance: ERENUMAB
     Dosage: 70 MILLIGRAM
     Route: 058
     Dates: start: 20201022, end: 20201022
  2. ERENUMAB [Suspect]
     Active Substance: ERENUMAB
     Dosage: 70 MILLIGRAM
     Route: 058
     Dates: start: 20201217, end: 20201217
  3. VERAPAMIL [Concomitant]
     Active Substance: VERAPAMIL HYDROCHLORIDE
     Indication: CLUSTER HEADACHE
     Dosage: 240 MILLIGRAM, QD
     Route: 048
     Dates: start: 20180101
  4. ERENUMAB [Suspect]
     Active Substance: ERENUMAB
     Dosage: 140 MILLIGRAM
     Route: 058
     Dates: start: 20210214, end: 20210214
  5. ERENUMAB [Suspect]
     Active Substance: ERENUMAB
     Dosage: 70 MILLIGRAM
     Route: 058
     Dates: start: 20201127, end: 20201127
  6. ERENUMAB [Suspect]
     Active Substance: ERENUMAB
     Dosage: 140 MILLIGRAM
     Route: 058
     Dates: start: 20210117, end: 20210117
  7. VERAPAMIL [Concomitant]
     Active Substance: VERAPAMIL HYDROCHLORIDE
     Dosage: 80 MILLIGRAM, QD
     Route: 048
     Dates: start: 20210319
  8. ERENUMAB [Suspect]
     Active Substance: ERENUMAB
     Indication: MIGRAINE
     Dosage: 70 MILLIGRAM
     Route: 058
     Dates: start: 20200924, end: 20200924
  9. ERENUMAB [Suspect]
     Active Substance: ERENUMAB
     Dosage: 140 MILLIGRAM
     Route: 058
     Dates: start: 20210315, end: 20210315
  10. ERENUMAB [Suspect]
     Active Substance: ERENUMAB
     Dosage: UNK
     Route: 065
     Dates: end: 20210318

REACTIONS (6)
  - Muscle abscess [Recovered/Resolved]
  - Pyrexia [Recovered/Resolved]
  - Spinal cord abscess [Recovered/Resolved]
  - Back pain [Recovering/Resolving]
  - Therapeutic product effect incomplete [Unknown]
  - Sepsis [Recovered/Resolved]

NARRATIVE: CASE EVENT DATE: 20210323
